FAERS Safety Report 7346534-1 (Version None)
Quarter: 2011Q1

REPORT INFORMATION
  Report Type: 
  Country: None (occurrence: None)
  Receive Date: 20110311
  Receipt Date: 20110302
  Transmission Date: 20110831
  Serious: Yes (Other)
  Sender: FDA-Public Use
  Company Number: JP-JNJFOC-20110106969

PATIENT
  Age: 75 Year
  Sex: Male

DRUGS (3)
  1. DUROTEP MT [Suspect]
     Indication: SPINAL COLUMN STENOSIS
     Route: 062
  2. NOVAMIN [Suspect]
     Indication: PROPHYLAXIS
     Route: 065
  3. NOVAMIN [Suspect]
     Route: 065

REACTIONS (6)
  - MALAISE [None]
  - GAIT DISTURBANCE [None]
  - ACTIVITIES OF DAILY LIVING IMPAIRED [None]
  - DYSPHAGIA [None]
  - NAUSEA [None]
  - SALIVARY HYPERSECRETION [None]
